FAERS Safety Report 10132529 (Version 1)
Quarter: 2014Q2

REPORT INFORMATION
  Report Type: Spontaneous
  Country: US (occurrence: US)
  Receive Date: 20140428
  Receipt Date: 20140428
  Transmission Date: 20141212
  Serious: Yes (Other)
  Sender: FDA-Public Use
  Company Number: US-PFIZER INC-2014116721

PATIENT
  Sex: Female

DRUGS (2)
  1. ROBITUSSIN [Suspect]
     Indication: COUGH
     Dosage: UNK
  2. ROBITUSSIN [Suspect]
     Indication: INFLUENZA

REACTIONS (2)
  - Loss of consciousness [Unknown]
  - Nausea [Unknown]
